FAERS Safety Report 21095081 (Version 1)
Quarter: 2022Q3

REPORT INFORMATION
  Report Type: Spontaneous
  Country: RU (occurrence: RU)
  Receive Date: 20220718
  Receipt Date: 20220718
  Transmission Date: 20221027
  Serious: Yes (Other)
  Sender: FDA-Public Use
  Company Number: RU-BEH-2022147444

PATIENT
  Age: 4 Year
  Sex: Female
  Weight: 15.5 kg

DRUGS (2)
  1. PRIVIGEN [Suspect]
     Active Substance: HUMAN IMMUNOGLOBULIN G
     Indication: Primary immunodeficiency syndrome
     Dosage: 50 MILLILITER, TOT
     Route: 042
     Dates: start: 20220609, end: 20220609
  2. PRIVIGEN [Suspect]
     Active Substance: HUMAN IMMUNOGLOBULIN G
     Indication: DiGeorge^s syndrome

REACTIONS (5)
  - Anxiety [Recovering/Resolving]
  - Tremor [Recovering/Resolving]
  - Cyanosis [Recovering/Resolving]
  - Peripheral coldness [Recovering/Resolving]
  - Body temperature increased [Recovering/Resolving]

NARRATIVE: CASE EVENT DATE: 20220609
